FAERS Safety Report 24588409 (Version 2)
Quarter: 2024Q4

REPORT INFORMATION
  Report Type: Spontaneous
  Country: JP (occurrence: JP)
  Receive Date: 20241107
  Receipt Date: 20241125
  Transmission Date: 20250115
  Serious: Yes (Hospitalization, Other)
  Sender: MERCK
  Company Number: JP-MSD-2410JPN004787J

PATIENT
  Age: 67 Year
  Sex: Female

DRUGS (1)
  1. KEYTRUDA [Suspect]
     Active Substance: PEMBROLIZUMAB
     Indication: Triple negative breast cancer
     Dosage: 200 MILLIGRAM, Q3W
     Route: 041
     Dates: start: 20220531

REACTIONS (4)
  - Immune-mediated hypothyroidism [Recovering/Resolving]
  - Herpes zoster [Recovered/Resolved]
  - Neuropathy peripheral [Not Recovered/Not Resolved]
  - Neutrophil count decreased [Recovered/Resolved]

NARRATIVE: CASE EVENT DATE: 20220614
